FAERS Safety Report 6750244-9 (Version None)
Quarter: 2010Q2

REPORT INFORMATION
  Report Type: 
  Country: None (occurrence: None)
  Receive Date: 20100527
  Receipt Date: 20100419
  Transmission Date: 20101027
  Serious: Yes (Life-Threatening, Hospitalization, Other)
  Sender: FDA-Public Use
  Company Number: 20108834

PATIENT
  Age: 35 Year
  Sex: Male

DRUGS (3)
  1. LIORESAL [Suspect]
     Indication: MUSCLE SPASTICITY
     Dosage: MCG, DAILY, INTHRATEHCAL
     Route: 037
  2. DILAUDID [Concomitant]
  3. BUPVICAINE [Concomitant]

REACTIONS (10)
  - ABDOMINAL INFECTION [None]
  - ANAEMIA [None]
  - DRUG DOSE OMISSION [None]
  - FEAR OF DEATH [None]
  - IMPLANT SITE HAEMORRHAGE [None]
  - LYMPHADENOPATHY [None]
  - NO THERAPEUTIC RESPONSE [None]
  - OVERDOSE [None]
  - PAIN [None]
  - SKIN DISORDER [None]
